FAERS Safety Report 10404840 (Version 1)
Quarter: 2014Q3

REPORT INFORMATION
  Report Type: Spontaneous
  Country: FR (occurrence: FR)
  Receive Date: 20140825
  Receipt Date: 20140825
  Transmission Date: 20150326
  Serious: Yes (Other)
  Sender: FDA-Public Use
  Company Number: FR-ROCHE-1453652

PATIENT
  Age: 79 Year
  Sex: Male

DRUGS (1)
  1. MABTHERA [Suspect]
     Active Substance: RITUXIMAB
     Indication: NON-HODGKIN^S LYMPHOMA
     Route: 041

REACTIONS (4)
  - Nausea [Unknown]
  - Vertigo [Unknown]
  - Rash maculo-papular [Unknown]
  - Malaise [Unknown]
